FAERS Safety Report 7475797-7 (Version None)
Quarter: 2011Q2

REPORT INFORMATION
  Report Type: 
  Country: None (occurrence: None)
  Receive Date: 20110512
  Receipt Date: 20110428
  Transmission Date: 20111010
  Serious: Yes (Hospitalization, Other)
  Sender: FDA-Public Use
  Company Number: GB-PFIZER INC-2008066591

PATIENT
  Age: 80 Year
  Sex: Female

DRUGS (10)
  1. PRAVASTATIN [Interacting]
     Indication: HYPERCHOLESTEROLAEMIA
  2. ARTHROTEC [Interacting]
     Indication: DEPRESSION
     Dosage: 75 MG, 1X/DAY
  3. ASPIRIN [Interacting]
     Indication: HYPERTENSION
     Route: 042
  4. ASPIRIN [Interacting]
     Dosage: 50 MG, 1X/DAY
  5. AMITRIPTYLINE HCL [Interacting]
     Indication: DEPRESSION
     Route: 042
  6. ATENOLOL [Interacting]
     Indication: HYPERTENSION
     Dosage: 50 MG, UNK
  7. ARTHROTEC [Suspect]
     Indication: ARTHRITIS
  8. ATENOLOL [Interacting]
     Indication: HYPERCHOLESTEROLAEMIA
  9. LEVOTHYROXINE SODIUM [Interacting]
     Indication: HYPOTHYROIDISM
  10. AMITRIPTYLINE HCL [Interacting]
     Indication: COLITIS

REACTIONS (2)
  - COLITIS [None]
  - DRUG INTERACTION [None]
